FAERS Safety Report 8011267-5 (Version None)
Quarter: 2011Q4

REPORT INFORMATION
  Report Type: 
  Country: None (occurrence: None)
  Receive Date: 20111227
  Receipt Date: 20111227
  Transmission Date: 20120403
  Serious: No
  Sender: FDA-Public Use
  Company Number: None

PATIENT
  Age: 77 Year
  Sex: Female
  Weight: 99.3 kg

DRUGS (1)
  1. TINCTURE OF OPIUM 10% [Suspect]
     Indication: DIARRHOEA
     Dosage: 0.6 ML
     Route: 048
     Dates: start: 20111224, end: 20111225

REACTIONS (2)
  - DRUG LABEL CONFUSION [None]
  - CIRCUMSTANCE OR INFORMATION CAPABLE OF LEADING TO MEDICATION ERROR [None]
